FAERS Safety Report 5396156-7 (Version None)
Quarter: 2007Q3

REPORT INFORMATION
  Report Type: 
  Country: None (occurrence: None)
  Receive Date: 20070718
  Receipt Date: 20070221
  Transmission Date: 20080115
  Serious: Yes (Life-Threatening, Hospitalization, Other)
  Sender: FDA-Public Use
  Company Number: 2006139099

PATIENT
  Age: 54 Year
  Sex: Female
  Weight: 79.4 kg

DRUGS (1)
  1. CELEBREX [Suspect]
     Dosage: 600 MG (200 MG,3 IN 1 D),ORAL
     Route: 048
     Dates: start: 20020304

REACTIONS (2)
  - MYOCARDIAL INFARCTION [None]
  - RESUSCITATION [None]
